FAERS Safety Report 24760155 (Version 1)
Quarter: 2024Q4

REPORT INFORMATION
  Report Type: Spontaneous
  Country: FR (occurrence: FR)
  Receive Date: 20241220
  Receipt Date: 20241220
  Transmission Date: 20250114
  Serious: Yes (Disabling, Other)
  Sender: PFIZER
  Company Number: None

PATIENT
  Age: 29 Year
  Sex: Male

DRUGS (5)
  1. RIFABUTIN [Interacting]
     Active Substance: RIFABUTIN
     Indication: Lymph node tuberculosis
     Dosage: 150 MG, 1X/DAY
     Route: 048
     Dates: start: 20121023, end: 20130131
  2. ETHAMBUTOL HYDROCHLORIDE [Suspect]
     Active Substance: ETHAMBUTOL HYDROCHLORIDE
     Indication: Lymph node tuberculosis
     Dosage: 1 G, 1X/DAY/ 3 TIMES A WEEK ON THE DAYS OF DIALYSIS
     Route: 048
     Dates: start: 20120821, end: 20130215
  3. CLARITHROMYCIN [Interacting]
     Active Substance: CLARITHROMYCIN
     Indication: Lymph node tuberculosis
     Dosage: 500 MG, 1X/DAY
     Route: 048
     Dates: start: 20120905, end: 20130215
  4. ISONIAZID [Concomitant]
     Active Substance: ISONIAZID
     Indication: Lymph node tuberculosis
     Dosage: 150 MG PER DAY
     Dates: start: 20120821, end: 20121019
  5. ISONIAZID [Concomitant]
     Active Substance: ISONIAZID
     Dosage: 150 MG PER DAY
     Dates: start: 20130201, end: 20130215

REACTIONS (5)
  - Drug interaction [Not Recovered/Not Resolved]
  - Optic neuritis [Not Recovered/Not Resolved]
  - Colour vision tests abnormal [Not Recovered/Not Resolved]
  - Uveitis [Recovered/Resolved]
  - Blindness [Not Recovered/Not Resolved]

NARRATIVE: CASE EVENT DATE: 20130101
